FAERS Safety Report 5243750-X (Version None)
Quarter: 2007Q1

REPORT INFORMATION
  Report Type: 
  Country: None (occurrence: None)
  Receive Date: 20070220
  Receipt Date: 20070220
  Transmission Date: 20070707
  Serious: No
  Sender: FDA-Public Use
  Company Number: None

PATIENT
  Sex: Male
  Weight: 89.3586 kg

DRUGS (2)
  1. VIAGRA [Suspect]
     Indication: ERECTILE DYSFUNCTION
     Dates: start: 19850125, end: 20040129
  2. VIAGRA [Suspect]
     Indication: ERECTILE DYSFUNCTION
     Dates: start: 20041220, end: 20041231

REACTIONS (2)
  - OPTIC NERVE DISORDER [None]
  - VISION BLURRED [None]
